FAERS Safety Report 4707388-2 (Version None)
Quarter: 2005Q3

REPORT INFORMATION
  Report Type: 
  Country: None (occurrence: None)
  Receive Date: 20050705
  Receipt Date: 20050705
  Transmission Date: 20060218
  Serious: No
  Sender: FDA-Public Use
  Company Number: None

PATIENT
  Age: 23 Month
  Sex: Male

DRUGS (1)
  1. DITROPAN [Suspect]
     Dosage: SUSPENSION

REACTIONS (6)
  - ACCIDENTAL OVERDOSE [None]
  - DRUG PRESCRIBING ERROR [None]
  - DRUG TOXICITY [None]
  - INCORRECT DOSE ADMINISTERED [None]
  - MEDICATION ERROR [None]
  - PHARMACEUTICAL PRODUCT COMPLAINT [None]
